FAERS Safety Report 7419394-8 (Version None)
Quarter: 2011Q2

REPORT INFORMATION
  Report Type: 
  Country: None (occurrence: None)
  Receive Date: 20110415
  Receipt Date: 20110412
  Transmission Date: 20111010
  Serious: Yes (Life-Threatening, Other)
  Sender: FDA-Public Use
  Company Number: PK-BAYER-2011-031735

PATIENT
  Age: 36 Year
  Sex: Male

DRUGS (1)
  1. ULTRAVIST 300 [Suspect]
     Indication: PRODUCT USED FOR UNKNOWN INDICATION
     Dosage: 50 ML, ONCE
     Route: 042
     Dates: start: 20110407, end: 20110407

REACTIONS (8)
  - FLUSHING [None]
  - DYSPNOEA [None]
  - CHEST PAIN [None]
  - VERTIGO [None]
  - CONFUSIONAL STATE [None]
  - HYPERHIDROSIS [None]
  - TACHYPNOEA [None]
  - PALPITATIONS [None]
